FAERS Safety Report 12302249 (Version 1)
Quarter: 2016Q2

REPORT INFORMATION
  Report Type: Spontaneous
  Country: US (occurrence: US)
  Receive Date: 20160425
  Receipt Date: 20160425
  Transmission Date: 20160815
  Serious: No
  Sender: FDA-Public Use
  Company Number: US-MDT-ADR-2016-00305

PATIENT
  Age: 59 Year
  Sex: Female

DRUGS (7)
  1. ATORVASTATIN [Suspect]
     Active Substance: ATORVASTATIN
  2. BACLOFEN. [Suspect]
     Active Substance: BACLOFEN
     Dosage: 100
     Route: 037
     Dates: start: 20140813
  3. COPAXONE [Suspect]
     Active Substance: GLATIRAMER ACETATE
  4. OXYBUTYNIN [Suspect]
     Active Substance: OXYBUTYNIN
  5. BUPROPRION [Suspect]
     Active Substance: BUPROPION
  6. VITAMIN B12 [Suspect]
     Active Substance: CYANOCOBALAMIN
  7. LIORESAL [Suspect]
     Active Substance: BACLOFEN
     Dosage: 36.93MCG/DAY
     Route: 037
     Dates: start: 20160204

REACTIONS (6)
  - Muscle spasms [Unknown]
  - Abasia [Unknown]
  - Muscular weakness [Unknown]
  - Adverse drug reaction [Unknown]
  - Performance status decreased [Unknown]
  - No therapeutic response [Unknown]
